FAERS Safety Report 9244654 (Version 2)
Quarter: 2013Q2

REPORT INFORMATION
  Report Type: Spontaneous
  Country: JP (occurrence: JP)
  Receive Date: 20130422
  Receipt Date: 20130430
  Transmission Date: 20140414
  Serious: Yes (Hospitalization)
  Sender: FDA-Public Use
  Company Number: JP-BRISTOL-MYERS SQUIBB COMPANY-18793505

PATIENT
  Age: 80 Year
  Sex: Female

DRUGS (11)
  1. METGLUCO [Suspect]
     Indication: DIABETES MELLITUS
     Route: 048
     Dates: end: 20130328
  2. JANUVIA [Concomitant]
     Indication: DIABETES MELLITUS
     Route: 048
     Dates: end: 20130328
  3. AMARYL [Concomitant]
     Indication: DIABETES MELLITUS
     Route: 048
  4. LASIX [Concomitant]
     Indication: HYPERTENSION
     Route: 048
     Dates: end: 20130328
  5. HYZAAR [Concomitant]
     Route: 048
  6. WARFARIN [Concomitant]
     Indication: ATRIAL FIBRILLATION
     Route: 048
  7. MEMANTINE HCL [Concomitant]
     Indication: DEMENTIA
     Route: 048
  8. MYSLEE [Concomitant]
     Indication: INSOMNIA
     Route: 048
  9. NORVASC [Concomitant]
     Indication: HYPERTENSION
     Route: 048
  10. NU-LOTAN [Concomitant]
     Indication: HYPERTENSION
     Route: 048
     Dates: end: 20130328
  11. KETOPROFEN [Concomitant]

REACTIONS (1)
  - Lactic acidosis [Recovered/Resolved]
